FAERS Safety Report 17014130 (Version 3)
Quarter: 2022Q2

REPORT INFORMATION
  Report Type: Spontaneous
  Country: IT (occurrence: IT)
  Receive Date: 20191111
  Receipt Date: 20220519
  Transmission Date: 20220721
  Serious: Yes (Death)
  Sender: FDA-Public Use
  Company Number: None

PATIENT
  Sex: Female

DRUGS (13)
  1. LEVETIRACETAM [Suspect]
     Active Substance: LEVETIRACETAM
     Indication: Status epilepticus
     Dosage: UNK (UP TO 50 MG/KG/DAY)
     Route: 065
  2. KETAMINE [Suspect]
     Active Substance: KETAMINE
     Indication: Status epilepticus
     Dosage: 3.6 MG/KG, UNK (INFUSION, PER HOUR)
     Route: 065
  3. KETAMINE [Suspect]
     Active Substance: KETAMINE
     Dosage: 1.44 MG/KG, UNK (INFUSION, PER HOUR)
     Route: 065
  4. KETAMINE [Suspect]
     Active Substance: KETAMINE
     Dosage: 60 MICROGRAM/KILOGRAM,60 UG/KG, UNK (60MCG/KG/MIN)
     Route: 065
  5. KETAMINE [Suspect]
     Active Substance: KETAMINE
     Dosage: 10 MICROGRAM/KILOGRAM,10 UG/KG, UNK (CONTINUOUS INFUSION OF 10 MCG/KG/MIN)
     Route: 042
  6. KETAMINE [Suspect]
     Active Substance: KETAMINE
     Dosage: 2 MILLIGRAM/KILOGRAM,2 MG/KG, UNK (OCCASIONAL BOLUSES)
     Route: 040
  7. KETAMINE [Suspect]
     Active Substance: KETAMINE
     Dosage: 2 MILLIGRAM/KILOGRAM,2 MG/KG, UNK (TWO BOLUSES)
     Route: 040
  8. MIDAZOLAM [Suspect]
     Active Substance: MIDAZOLAM
     Indication: Status epilepticus
     Dosage: UNK (UP TO 20 MCG/KG/MIN)
     Route: 065
  9. MIDAZOLAM [Suspect]
     Active Substance: MIDAZOLAM
     Dosage: 5 MICROGRAM/KILOGRAM
     Route: 065
  10. PHENOBARBITAL [Suspect]
     Active Substance: PHENOBARBITAL
     Indication: Status epilepticus
     Dosage: UNK
     Route: 065
  11. CARBAMAZEPINE [Suspect]
     Active Substance: CARBAMAZEPINE
     Indication: Status epilepticus
     Dosage: 35.5 MILLIGRAM/KILOGRAM, ONCE A DAY
     Route: 065
  12. PHENYTOIN [Suspect]
     Active Substance: PHENYTOIN
     Indication: Status epilepticus
     Dosage: UNK
     Route: 065
  13. PROPOFOL [Suspect]
     Active Substance: PROPOFOL
     Indication: Status epilepticus
     Dosage: 2 MILLIGRAM/KILOGRAM
     Route: 065

REACTIONS (1)
  - Drug ineffective [Fatal]
